FAERS Safety Report 5948994-7 (Version None)
Quarter: 2008Q4

REPORT INFORMATION
  Report Type: 
  Country: None (occurrence: None)
  Receive Date: 20081111
  Receipt Date: 20081030
  Transmission Date: 20090506
  Serious: Yes (Hospitalization)
  Sender: FDA-Public Use
  Company Number: IN-ELI_LILLY_AND_COMPANY-IN200811000111

PATIENT
  Sex: Female
  Weight: 87 kg

DRUGS (4)
  1. BYETTA [Suspect]
     Indication: DIABETES MELLITUS
     Dosage: 5 UG, 2/D
     Route: 058
     Dates: start: 20080926
  2. HUMAN MIXTARD /00030505/ [Concomitant]
     Dosage: 30 U, EACH MORNING
     Route: 058
  3. HUMAN MIXTARD /00030505/ [Concomitant]
     Dosage: 30 U, AT NIGHT
  4. INSULIN ACTRAPID [Concomitant]
     Dosage: 40 U, DAILY (1/D)
     Route: 058

REACTIONS (2)
  - BLOOD GLUCOSE INCREASED [None]
  - INCORRECT DOSE ADMINISTERED [None]
